FAERS Safety Report 4905404-6 (Version None)
Quarter: 2006Q1

REPORT INFORMATION
  Report Type: 
  Country: None (occurrence: None)
  Receive Date: 20060208
  Receipt Date: 20051130
  Transmission Date: 20060701
  Serious: Yes (Hospitalization)
  Sender: FDA-Public Use
  Company Number: JP-MERCK-0512USA00434

PATIENT
  Age: 84 Year
  Sex: Male
  Weight: 44 kg

DRUGS (5)
  1. PRIMAXIN [Suspect]
     Indication: POSTOPERATIVE INFECTION
     Route: 042
     Dates: start: 20050117, end: 20050122
  2. FLOMOXEF SODIUM [Suspect]
     Indication: PROPHYLAXIS
     Route: 042
     Dates: start: 20050113, end: 20050117
  3. ELECTROLYTES (UNSPECIFIED) [Concomitant]
     Route: 042
     Dates: start: 20050113, end: 20050115
  4. DEXTROSE [Concomitant]
     Route: 042
     Dates: start: 20050113, end: 20050129
  5. [COMPOSITION UNSPECIFIED] [Concomitant]
     Route: 042
     Dates: start: 20050113, end: 20050122

REACTIONS (4)
  - CLOSTRIDIUM COLITIS [None]
  - PLATELET COUNT DECREASED [None]
  - SEPSIS [None]
  - STAPHYLOCOCCAL INFECTION [None]
